FAERS Safety Report 15639139 (Version 1)
Quarter: 2018Q4

REPORT INFORMATION
  Report Type: Spontaneous
  Country: US (occurrence: US)
  Receive Date: 20181120
  Receipt Date: 20181120
  Transmission Date: 20190205
  Serious: Yes (Hospitalization)
  Sender: FDA-Public Use
  Company Number: US-TARO PHARMACEUTICALS USA.,INC-2018SUN00580

PATIENT
  Weight: 1.7 kg

DRUGS (1)
  1. ACETAMINOPHEN. [Suspect]
     Active Substance: ACETAMINOPHEN
     Indication: TOOTHACHE
     Dosage: UNK
     Route: 064

REACTIONS (6)
  - Premature baby [Recovering/Resolving]
  - Hepatotoxicity [Recovered/Resolved]
  - Coagulopathy [Recovered/Resolved]
  - Toxicity to various agents [Recovered/Resolved]
  - Catheter site haemorrhage [Unknown]
  - Foetal exposure during pregnancy [Recovering/Resolving]
